FAERS Safety Report 7042219-X (Version None)
Quarter: 2010Q4

REPORT INFORMATION
  Report Type: 
  Country: None (occurrence: None)
  Receive Date: 20101008
  Receipt Date: 20100915
  Transmission Date: 20110411
  Serious: Yes (Hospitalization, Disabling)
  Sender: FDA-Public Use
  Company Number: AT-2010-2071

PATIENT
  Age: 62 Year
  Sex: Male
  Weight: 79 kg

DRUGS (6)
  1. NAVELBINE [Suspect]
     Indication: CHEMOTHERAPY
     Dates: start: 20100726, end: 20100823
  2. NAVELBINE [Suspect]
     Indication: CHEMOTHERAPY
     Dates: start: 20100726, end: 20100823
  3. EMEND [Concomitant]
  4. FORTECORTIN. MFR: NOT SPECIFIED [Concomitant]
  5. PASPERTIN. MFR: NOT SPECIFIED [Concomitant]
  6. ZOFRAN. MFR: NOT SPECIFIED [Concomitant]

REACTIONS (2)
  - ACUTE MYOCARDIAL INFARCTION [None]
  - CORONARY ARTERY OCCLUSION [None]
